FAERS Safety Report 22303068 (Version 1)
Quarter: 2023Q2

REPORT INFORMATION
  Report Type: Spontaneous
  Country: US (occurrence: None)
  Receive Date: 20230508
  Receipt Date: 20230508
  Transmission Date: 20230721
  Serious: Yes (Life-Threatening, Hospitalization, Disabling)
  Sender: FDA-Public Use
  Company Number: None

PATIENT
  Age: 70 Year
  Sex: Female
  Weight: 86.18 kg

DRUGS (1)
  1. OZEMPIC [Suspect]
     Active Substance: SEMAGLUTIDE

REACTIONS (2)
  - Adverse event [None]
  - General physical health deterioration [None]

NARRATIVE: CASE EVENT DATE: 20230408
